FAERS Safety Report 21747470 (Version 1)
Quarter: 2022Q4

REPORT INFORMATION
  Report Type: Spontaneous
  Country: US (occurrence: None)
  Receive Date: 20221217
  Receipt Date: 20221217
  Transmission Date: 20230112
  Serious: Yes (Hospitalization)
  Sender: FDA-Public Use
  Company Number: None

PATIENT
  Age: 21 Year
  Sex: Female
  Weight: 83.25 kg

DRUGS (1)
  1. NEUTROGENA RAPID CLEAR STUBBORN ACNE SPOT [Suspect]
     Active Substance: BENZOYL PEROXIDE
     Indication: Acne
     Dosage: OTHER QUANTITY : 28 DROP(S);?FREQUENCY : AS NEEDED;?
     Route: 061
     Dates: start: 20221215, end: 20221215

REACTIONS (3)
  - Application site erythema [None]
  - Throat tightness [None]
  - Drug hypersensitivity [None]

NARRATIVE: CASE EVENT DATE: 20221216
